FAERS Safety Report 4446610-7 (Version None)
Quarter: 2004Q3

REPORT INFORMATION
  Report Type: 
  Country: None (occurrence: None)
  Receive Date: 20040910
  Receipt Date: 20040831
  Transmission Date: 20050211
  Serious: Yes (Hospitalization, Disabling)
  Sender: FDA-Public Use
  Company Number: GB-MERCK-0409GBR00019

PATIENT
  Age: 79 Year
  Sex: Female

DRUGS (4)
  1. FOSAMAX [Suspect]
     Indication: OSTEOPOROSIS
     Route: 048
     Dates: start: 19990101
  2. FOSAMAX [Suspect]
     Route: 048
     Dates: end: 20040801
  3. BISOPROLOL [Concomitant]
     Route: 065
  4. WARFARIN [Concomitant]
     Route: 065

REACTIONS (4)
  - BODY TEMPERATURE INCREASED [None]
  - DIZZINESS [None]
  - FEELING ABNORMAL [None]
  - SWEATING FEVER [None]
